FAERS Safety Report 16529522 (Version 1)
Quarter: 2019Q3

REPORT INFORMATION
  Report Type: Spontaneous
  Country: JP (occurrence: JP)
  Receive Date: 20190703
  Receipt Date: 20190703
  Transmission Date: 20191004
  Serious: Yes (Other)
  Sender: FDA-Public Use
  Company Number: JP-LUNDBECK-DKLU3000341

PATIENT
  Age: 6 Month
  Sex: Male

DRUGS (1)
  1. SABRIL [Suspect]
     Active Substance: VIGABATRIN
     Indication: INFANTILE SPASMS
     Route: 048

REACTIONS (4)
  - Nuclear magnetic resonance imaging brain abnormal [Recovering/Resolving]
  - Asthenia [Recovering/Resolving]
  - Hemiplegia [Recovering/Resolving]
  - Therapy non-responder [Unknown]
